FAERS Safety Report 9009317 (Version 6)
Quarter: 2013Q3

REPORT INFORMATION
  Report Type: Report from Study
  Country: US (occurrence: US)
  Receive Date: 20130111
  Receipt Date: 20130731
  Transmission Date: 20140515
  Serious: Yes (Hospitalization)
  Sender: FDA-Public Use
  Company Number: US-US-EMD SERONO, INC.-7186008

PATIENT
  Age: 43 Year
  Sex: Male

DRUGS (3)
  1. REBIF [Suspect]
     Indication: MULTIPLE SCLEROSIS
     Route: 058
     Dates: start: 20120816, end: 20130104
  2. REBIF [Suspect]
     Route: 058
  3. METFORMIN [Concomitant]
     Indication: TYPE 2 DIABETES MELLITUS

REACTIONS (11)
  - Sepsis [Unknown]
  - Pneumonia [Unknown]
  - Bronchitis [Unknown]
  - Multiple sclerosis relapse [Recovering/Resolving]
  - Hypertension [Unknown]
  - Anxiety [Unknown]
  - Laceration [Not Recovered/Not Resolved]
  - Blood glucose decreased [Unknown]
  - Eye irritation [Unknown]
  - Muscle spasticity [Recovering/Resolving]
  - Myalgia [Recovering/Resolving]
